FAERS Safety Report 5045766-5 (Version None)
Quarter: 2006Q3

REPORT INFORMATION
  Report Type: 
  Country: None (occurrence: None)
  Receive Date: 20060710
  Receipt Date: 20060629
  Transmission Date: 20061208
  Serious: Yes (Other)
  Sender: FDA-Public Use
  Company Number: US-KINGPHARMUSA00001-K200600855

PATIENT
  Age: 72 Year
  Sex: Male

DRUGS (2)
  1. VIROPTIC SOLUTION [Suspect]
     Indication: HERPES VIRUS INFECTION
     Dosage: 2 GTT Q 7 HOURS
     Route: 031
     Dates: start: 20060620, end: 20060627
  2. VIROPTIC SOLUTION [Suspect]
     Dosage: 1 GTT, TID
     Dates: start: 20060627

REACTIONS (6)
  - CORNEAL OPACITY [None]
  - EYE INFECTION [None]
  - HERPES SIMPLEX [None]
  - HYPERSENSITIVITY [None]
  - MULTIPLE ALLERGIES [None]
  - VISUAL ACUITY REDUCED [None]
